FAERS Safety Report 8923282 (Version 2)
Quarter: 2012Q4

REPORT INFORMATION
  Report Type: 
  Country: DK (occurrence: DK)
  Receive Date: 20121124
  Receipt Date: 20121130
  Transmission Date: 20130627
  Serious: Yes (Hospitalization)
  Sender: FDA-Public Use
  Company Number: PHHY2012DK106582

PATIENT
  Age: 75 None
  Sex: Male

DRUGS (2)
  1. ANCOZAN [Suspect]
     Indication: HYPERTENSION
     Dosage: 50 mg, daily dose
     Dates: start: 2008
  2. ATENOLOL [Suspect]
     Indication: HYPERTENSION
     Dosage: 25 mg, daily dose
     Dates: start: 2008

REACTIONS (3)
  - Hepatic steatosis [Recovered/Resolved]
  - Hepatic enzyme increased [Recovered/Resolved]
  - Chest pain [Recovered/Resolved]
